FAERS Safety Report 10592299 (Version 2)
Quarter: 2014Q4

REPORT INFORMATION
  Report Type: Spontaneous
  Country: AT (occurrence: None)
  Receive Date: 20141117
  Receipt Date: 20141124
  Transmission Date: 20150529
  Serious: Yes (Death)
  Sender: FDA-Public Use
  Company Number: FK201405152

PATIENT
  Age: 33 Year
  Sex: Female

DRUGS (24)
  1. CARBOPLATIN (MANUFACTURER UNKNOWN) (CARBOPLATIN) (CARBOPLATIN) [Suspect]
     Active Substance: CARBOPLATIN
     Indication: METASTASES TO SKIN
     Dosage: CYCLICAL
     Dates: start: 200912
  2. CAPECITABINE (MANUFACTURER UNKNOWN) (CAPECITABINE) (CAPECITABINE) [Suspect]
     Active Substance: CAPECITABINE
     Indication: METASTASES TO LUNG
     Dosage: 3000 MG, 1 IN 1 D
     Dates: start: 200902, end: 200910
  3. BEVACIZUMAB (BEVACIZUMAB) (BEVACIZUMAB) [Suspect]
     Active Substance: BEVACIZUMAB
     Indication: METASTASES TO SKIN
     Dates: start: 200902, end: 200910
  4. CELECOXIB (CELECOXIB) (CELECOXIB) [Suspect]
     Active Substance: CELECOXIB
     Indication: METASTASES TO LUNG
     Dosage: 400 MG/KG, 1 IN 1 D
     Dates: start: 200902, end: 200910
  5. LAPATINIB (LAPATINIB) (LAPATINIB) [Suspect]
     Active Substance: LAPATINIB
     Indication: INVASIVE DUCTAL BREAST CARCINOMA
     Dosage: 500 MG, 1 IN 1 D
  6. LAPATINIB (LAPATINIB) (LAPATINIB) [Suspect]
     Active Substance: LAPATINIB
     Indication: METASTASES TO BONE
     Dosage: 500 MG, 1 IN 1 D
  7. CARBOPLATIN (MANUFACTURER UNKNOWN) (CARBOPLATIN) (CARBOPLATIN) [Suspect]
     Active Substance: CARBOPLATIN
     Indication: METASTASES TO LUNG
     Dosage: CYCLICAL
     Dates: start: 200912
  8. PACLITAXEL (MANUFACTURER UNKNOWN) (PACLITAXEL) (PACLITAXEL) [Suspect]
     Active Substance: PACLITAXEL
     Indication: INVASIVE DUCTAL BREAST CARCINOMA
     Dosage: CYCLICAL
     Dates: start: 200912
  9. CAPECITABINE (MANUFACTURER UNKNOWN) (CAPECITABINE) (CAPECITABINE) [Suspect]
     Active Substance: CAPECITABINE
     Indication: INVASIVE DUCTAL BREAST CARCINOMA
     Dosage: 3000 MG, 1 IN 1 D
     Dates: start: 200902, end: 200910
  10. BEVACIZUMAB (BEVACIZUMAB) (BEVACIZUMAB) [Suspect]
     Active Substance: BEVACIZUMAB
     Indication: METASTASES TO BONE
     Dates: start: 200902, end: 200910
  11. PACLITAXEL (MANUFACTURER UNKNOWN) (PACLITAXEL) (PACLITAXEL) [Suspect]
     Active Substance: PACLITAXEL
     Indication: METASTASES TO LUNG
     Dosage: CYCLICAL
     Dates: start: 200912
  12. PACLITAXEL (MANUFACTURER UNKNOWN) (PACLITAXEL) (PACLITAXEL) [Suspect]
     Active Substance: PACLITAXEL
     Indication: METASTASES TO SKIN
     Dosage: CYCLICAL
     Dates: start: 200912
  13. CELECOXIB (CELECOXIB) (CELECOXIB) [Suspect]
     Active Substance: CELECOXIB
     Indication: INVASIVE DUCTAL BREAST CARCINOMA
     Dosage: 400 MG/KG, 1 IN 1 D
     Dates: start: 200902, end: 200910
  14. CELECOXIB (CELECOXIB) (CELECOXIB) [Suspect]
     Active Substance: CELECOXIB
     Indication: METASTASES TO SKIN
     Dosage: 400 MG/KG, 1 IN 1 D
     Dates: start: 200902, end: 200910
  15. CARBOPLATIN (MANUFACTURER UNKNOWN) (CARBOPLATIN) (CARBOPLATIN) [Suspect]
     Active Substance: CARBOPLATIN
     Indication: METASTASES TO BONE
     Dosage: CYCLICAL
     Dates: start: 200912
  16. CAPECITABINE (MANUFACTURER UNKNOWN) (CAPECITABINE) (CAPECITABINE) [Suspect]
     Active Substance: CAPECITABINE
     Indication: METASTASES TO BONE
     Dosage: 3000 MG, 1 IN 1 D
     Dates: start: 200902, end: 200910
  17. CELECOXIB (CELECOXIB) (CELECOXIB) [Suspect]
     Active Substance: CELECOXIB
     Indication: METASTASES TO BONE
     Dosage: 400 MG/KG, 1 IN 1 D
     Dates: start: 200902, end: 200910
  18. BEVACIZUMAB (BEVACIZUMAB) (BEVACIZUMAB) [Suspect]
     Active Substance: BEVACIZUMAB
     Indication: METASTASES TO LUNG
     Dates: start: 200902, end: 200910
  19. LAPATINIB (LAPATINIB) (LAPATINIB) [Suspect]
     Active Substance: LAPATINIB
     Indication: METASTASES TO LUNG
     Dosage: 500 MG, 1 IN 1 D
  20. LAPATINIB (LAPATINIB) (LAPATINIB) [Suspect]
     Active Substance: LAPATINIB
     Indication: METASTASES TO SKIN
     Dosage: 500 MG, 1 IN 1 D
  21. CARBOPLATIN (MANUFACTURER UNKNOWN) (CARBOPLATIN) (CARBOPLATIN) [Suspect]
     Active Substance: CARBOPLATIN
     Indication: INVASIVE DUCTAL BREAST CARCINOMA
     Dosage: CYCLICAL
     Dates: start: 200912
  22. PACLITAXEL (MANUFACTURER UNKNOWN) (PACLITAXEL) (PACLITAXEL) [Suspect]
     Active Substance: PACLITAXEL
     Indication: METASTASES TO BONE
     Dosage: CYCLICAL
     Dates: start: 200912
  23. CAPECITABINE (MANUFACTURER UNKNOWN) (CAPECITABINE) (CAPECITABINE) [Suspect]
     Active Substance: CAPECITABINE
     Indication: METASTASES TO SKIN
     Dosage: 3000 MG, 1 IN 1 D
     Dates: start: 200902, end: 200910
  24. BEVACIZUMAB (BEVACIZUMAB) (BEVACIZUMAB) [Suspect]
     Active Substance: BEVACIZUMAB
     Indication: INVASIVE DUCTAL BREAST CARCINOMA
     Dates: start: 200902, end: 200910

REACTIONS (3)
  - Malignant neoplasm progression [None]
  - Malignant melanoma [None]
  - Metastases to spine [None]
